FAERS Safety Report 6665999-1 (Version None)
Quarter: 2010Q2

REPORT INFORMATION
  Report Type: 
  Country: None (occurrence: None)
  Receive Date: 20100402
  Receipt Date: 20100323
  Transmission Date: 20101027
  Serious: Yes (Hospitalization, Other)
  Sender: FDA-Public Use
  Company Number: NO-BRISTOL-MYERS SQUIBB COMPANY-15042005

PATIENT
  Age: 57 Year
  Sex: Male

DRUGS (10)
  1. METFORMIN HCL [Suspect]
     Indication: TYPE 2 DIABETES MELLITUS
     Dosage: 1 DF= 1G IN THE MORNING WITH 0.5-1G
     Dates: start: 19990101, end: 20080301
  2. ATORVASTATIN [Concomitant]
  3. METOPROLOL TARTRATE [Concomitant]
  4. ISOSORBIDE MONONITRATE [Concomitant]
  5. CLOPIDOGREL BISULFATE [Concomitant]
  6. RAMIPRIL [Concomitant]
  7. ASPIRIN [Concomitant]
  8. GLIPIZIDE [Concomitant]
  9. LANSOPRAZOLE [Concomitant]
  10. GLIMEPIRIDE [Concomitant]

REACTIONS (5)
  - BLOOD ELECTROLYTES DECREASED [None]
  - DIARRHOEA [None]
  - HYPOCALCAEMIA [None]
  - HYPOKALAEMIA [None]
  - HYPOMAGNESAEMIA [None]
